FAERS Safety Report 14935075 (Version 1)
Quarter: 2018Q2

REPORT INFORMATION
  Report Type: Spontaneous
  Country: US (occurrence: US)
  Receive Date: 20180505
  Receipt Date: 20180505
  Transmission Date: 20180711
  Serious: Yes (Hospitalization)
  Sender: FDA-Public Use
  Company Number: None

PATIENT
  Age: 14 Year
  Sex: Male
  Weight: 50.5 kg

DRUGS (10)
  1. PREDNISONE. [Suspect]
     Active Substance: PREDNISONE
     Dates: end: 20180422
  2. VINCRISTINE SULFATE. [Suspect]
     Active Substance: VINCRISTINE SULFATE
     Dates: end: 20180417
  3. ETOPOSIDE (VP-16) [Suspect]
     Active Substance: ETOPOSIDE
     Dates: end: 20160117
  4. ONCASPAR [Suspect]
     Active Substance: PEGASPARGASE
     Dates: end: 20160823
  5. MERCAPTOPURINE. [Suspect]
     Active Substance: MERCAPTOPURINE
     Dates: end: 20180501
  6. DOXORUBICIN HYDROCHLORIDE. [Suspect]
     Active Substance: DOXORUBICIN HYDROCHLORIDE
     Dates: end: 20160524
  7. METHOTREXATE. [Suspect]
     Active Substance: METHOTREXATE
     Dates: end: 20180501
  8. CYTARABINE. [Suspect]
     Active Substance: CYTARABINE
     Dates: end: 20151211
  9. CYCLOPHOSPHAMIDE. [Suspect]
     Active Substance: CYCLOPHOSPHAMIDE
     Dates: end: 20160117
  10. DAUNORUBICIN [Suspect]
     Active Substance: DAUNORUBICIN
     Dates: end: 20151110

REACTIONS (5)
  - Human metapneumovirus test positive [None]
  - Cholestasis [None]
  - Haemophilus test positive [None]
  - Hyperbilirubinaemia [None]
  - Neutropenia [None]

NARRATIVE: CASE EVENT DATE: 20180502
